FAERS Safety Report 8843501 (Version 1)
Quarter: 2012Q4

REPORT INFORMATION
  Report Type: 
  Country: CA (occurrence: CA)
  Receive Date: 20121016
  Receipt Date: 20121016
  Transmission Date: 20130627
  Serious: Yes (Other)
  Sender: FDA-Public Use
  Company Number: CA-ELI_LILLY_AND_COMPANY-CA201210001924

PATIENT
  Age: 68 Year
  Sex: Female

DRUGS (6)
  1. HUMALOG LISPRO [Suspect]
     Dosage: 2 u, prn
     Route: 051
  2. LANTUS [Concomitant]
  3. ANTIHYPERTENSIVES [Concomitant]
  4. LIPID MODIFYING AGENTS [Concomitant]
  5. DIURETICS [Concomitant]
  6. THYROID THERAPY [Concomitant]

REACTIONS (5)
  - Blood glucose abnormal [Not Recovered/Not Resolved]
  - Hyperglycaemia [Not Recovered/Not Resolved]
  - Wrong drug administered [Not Recovered/Not Resolved]
  - Wrong technique in drug usage process [Not Recovered/Not Resolved]
  - Hypoglycaemia [Not Recovered/Not Resolved]
